FAERS Safety Report 5126602-5 (Version None)
Quarter: 2006Q4

REPORT INFORMATION
  Report Type: 
  Country: None (occurrence: None)
  Receive Date: 20061012
  Receipt Date: 20061012
  Transmission Date: 20070319
  Serious: Yes (Life-Threatening, Hospitalization)
  Sender: FDA-Public Use
  Company Number: None

PATIENT
  Age: 60 Year
  Sex: Male
  Weight: 74.8 kg

DRUGS (2)
  1. LIDOCAINE [Suspect]
     Indication: THERAPEUTIC PROCEDURE
     Dosage: 360MG,18CC 2%, SUBCUTAN
     Route: 058
     Dates: start: 20060928, end: 20060928
  2. LIDOCAINE [Suspect]
     Indication: URINARY TRACT DISORDER
     Dosage: 360MG,18CC 2%, SUBCUTAN
     Route: 058
     Dates: start: 20060928, end: 20060928

REACTIONS (2)
  - CARDIAC ARREST [None]
  - CONVULSION [None]
